FAERS Safety Report 9739086 (Version 1)
Quarter: 2013Q4

REPORT INFORMATION
  Report Type: Report from Study
  Country: US (occurrence: US)
  Receive Date: 20131209
  Receipt Date: 20131209
  Transmission Date: 20140711
  Serious: Yes (Other)
  Sender: FDA-Public Use
  Company Number: US-ROCHE-1316158

PATIENT
  Sex: Female

DRUGS (4)
  1. AVASTIN [Suspect]
     Indication: VENOUS OCCLUSION
     Dosage: FORM OF ADMIN TEXT: OS
     Route: 065
  2. LOSARTAN [Concomitant]
     Route: 065
     Dates: start: 20131126
  3. NORVASC [Concomitant]
     Route: 065
     Dates: start: 20131126
  4. COMBIGAN [Concomitant]
     Dosage: 0.2-0.5% DROP?FORM OF ADMIN TEXT: LEFT EYE
     Route: 065
     Dates: start: 20131126

REACTIONS (2)
  - Cystoid macular oedema [Unknown]
  - Lacrimation decreased [Unknown]
